FAERS Safety Report 12114995 (Version 1)
Quarter: 2016Q1

REPORT INFORMATION
  Report Type: Report from Study
  Country: CL (occurrence: CL)
  Receive Date: 20160225
  Receipt Date: 20160225
  Transmission Date: 20160526
  Serious: Yes (Hospitalization, Other)
  Sender: FDA-Public Use
  Company Number: CL-EMD SERONO-8061768

PATIENT
  Age: 8 Month
  Sex: Male

DRUGS (1)
  1. SAIZEN [Suspect]
     Active Substance: SOMATROPIN
     Indication: RENAL FAILURE
     Dates: start: 20151211

REACTIONS (6)
  - Vomiting [Unknown]
  - Infection [Unknown]
  - Pyrexia [Unknown]
  - Intracranial pressure increased [Unknown]
  - Appetite disorder [Unknown]
  - Apathy [Unknown]

NARRATIVE: CASE EVENT DATE: 201512
